FAERS Safety Report 4902517-X (Version None)
Quarter: 2006Q1

REPORT INFORMATION
  Report Type: 
  Country: None (occurrence: None)
  Receive Date: 20060207
  Receipt Date: 20060131
  Transmission Date: 20060701
  Serious: Yes (Death, Hospitalization)
  Sender: FDA-Public Use
  Company Number: PHEH2006US01503

PATIENT
  Age: 61 Year
  Sex: Male
  Weight: 102 kg

DRUGS (2)
  1. EXJADE [Suspect]
     Indication: SICKLE CELL ANAEMIA
     Dosage: 2000 MG, QD
     Route: 048
     Dates: start: 20060107
  2. CHEMOTHERAPEUTICS,OTHER [Concomitant]

REACTIONS (3)
  - DEATH [None]
  - DISORIENTATION [None]
  - MALAISE [None]
